FAERS Safety Report 6023906-9 (Version None)
Quarter: 2008Q4

REPORT INFORMATION
  Report Type: 
  Country: None (occurrence: None)
  Receive Date: 20081223
  Receipt Date: 20081208
  Transmission Date: 20090506
  Serious: Yes (Other)
  Sender: FDA-Public Use
  Company Number: ACO_00493_2008

PATIENT
  Age: 62 Year
  Sex: Male
  Weight: 76.9 kg

DRUGS (1)
  1. TIZANIDINE HCL [Suspect]
     Indication: MUSCULOSKELETAL STIFFNESS
     Dosage: (39 UG/KG TID ORAL)
     Route: 048

REACTIONS (4)
  - DRUG LEVEL INCREASED [None]
  - HYPOTENSION [None]
  - PLATELET COUNT DECREASED [None]
  - SOMNOLENCE [None]
